FAERS Safety Report 8259253-4 (Version None)
Quarter: 2012Q2

REPORT INFORMATION
  Report Type: 
  Country: None (occurrence: None)
  Receive Date: 20120404
  Receipt Date: 20120326
  Transmission Date: 20120825
  Serious: Yes (Hospitalization)
  Sender: FDA-Public Use
  Company Number: FR-JNJFOC-20120401466

PATIENT
  Sex: Female

DRUGS (2)
  1. FLURBIPROFEN [Suspect]
     Indication: BACK PAIN
     Route: 048
     Dates: start: 20110923, end: 20110930
  2. ACETAMINOPHEN AND TRAMADOL HCL [Suspect]
     Indication: BACK PAIN
     Dosage: TRAMADOL/APAP- 37.5 MG + 325 MG
     Route: 048
     Dates: start: 20110923, end: 20110930

REACTIONS (2)
  - COLITIS [None]
  - RECTAL HAEMORRHAGE [None]
